FAERS Safety Report 5889165-2 (Version None)
Quarter: 2008Q3

REPORT INFORMATION
  Report Type: 
  Country: None (occurrence: None)
  Receive Date: 20080919
  Receipt Date: 20080912
  Transmission Date: 20090109
  Serious: Yes (Disabling)
  Sender: FDA-Public Use
  Company Number: US-JNJFOC-20080903316

PATIENT
  Age: 46 Year
  Sex: Female
  Weight: 95.26 kg

DRUGS (3)
  1. INVEGA [Suspect]
     Route: 048
  2. INVEGA [Suspect]
     Indication: MAJOR DEPRESSION
     Route: 048
  3. INVEGA [Suspect]
     Indication: SCHIZOAFFECTIVE DISORDER
     Route: 048

REACTIONS (5)
  - ANXIETY [None]
  - BLEPHAROSPASM [None]
  - BLINDNESS [None]
  - DYSKINESIA [None]
  - OPTIC NERVE DISORDER [None]
